FAERS Safety Report 15823749 (Version 1)
Quarter: 2019Q1

REPORT INFORMATION
  Report Type: Spontaneous
  Country: US (occurrence: US)
  Receive Date: 20190114
  Receipt Date: 20190114
  Transmission Date: 20190417
  Serious: No
  Sender: FDA-Public Use
  Company Number: US-EPIC PHARMA LLC-2018EPC00170

PATIENT
  Age: 56 Year
  Sex: Female
  Weight: 77.1 kg

DRUGS (2)
  1. ESTRADIOL. [Suspect]
     Active Substance: ESTRADIOL
     Indication: HOT FLUSH
     Dosage: 1 MG, 1X/DAY
     Route: 048
     Dates: start: 20180219, end: 20180307
  2. ESTRADIOL. [Suspect]
     Active Substance: ESTRADIOL
     Dosage: 1 MG, 1X/DAY
     Route: 048
     Dates: start: 20180308, end: 20180312

REACTIONS (1)
  - Supraventricular extrasystoles [Recovering/Resolving]

NARRATIVE: CASE EVENT DATE: 201803
